FAERS Safety Report 21724784 (Version 6)
Quarter: 2023Q2

REPORT INFORMATION
  Report Type: Report from Study
  Country: JP (occurrence: JP)
  Receive Date: 20221214
  Receipt Date: 20230505
  Transmission Date: 20230722
  Serious: Yes (Other)
  Sender: FDA-Public Use
  Company Number: JP-CELLTRION INC.-2022JP020843

PATIENT

DRUGS (36)
  1. INVESTIGATIONAL BIOSIMILARS [Suspect]
     Active Substance: INVESTIGATIONAL BIOSIMILARS
     Indication: HER2 positive gastric cancer
     Dosage: 488 MILLIGRAM, QD
     Route: 041
     Dates: start: 20210908, end: 20210908
  2. INVESTIGATIONAL BIOSIMILARS [Suspect]
     Active Substance: INVESTIGATIONAL BIOSIMILARS
     Dosage: 366 MILLIGRAM, QD
     Route: 041
     Dates: start: 20210928, end: 20210928
  3. INVESTIGATIONAL BIOSIMILARS [Suspect]
     Active Substance: INVESTIGATIONAL BIOSIMILARS
     Dosage: 366 MILLIGRAM, QD
     Route: 041
     Dates: start: 20211019, end: 20211019
  4. INVESTIGATIONAL BIOSIMILARS [Suspect]
     Active Substance: INVESTIGATIONAL BIOSIMILARS
     Dosage: 366 MILLIGRAM, QD
     Route: 041
     Dates: start: 20211109, end: 20211109
  5. INVESTIGATIONAL BIOSIMILARS [Suspect]
     Active Substance: INVESTIGATIONAL BIOSIMILARS
     Dosage: 320 MILLIGRAM, QD
     Route: 041
     Dates: start: 20211130, end: 20211130
  6. INVESTIGATIONAL BIOSIMILARS [Suspect]
     Active Substance: INVESTIGATIONAL BIOSIMILARS
     Dosage: 320 MILLIGRAM, QD
     Route: 041
     Dates: start: 20211221, end: 20211221
  7. INVESTIGATIONAL BIOSIMILARS [Suspect]
     Active Substance: INVESTIGATIONAL BIOSIMILARS
     Dosage: 320 MILLIGRAM, QD
     Route: 041
     Dates: start: 20220111, end: 20220111
  8. INVESTIGATIONAL BIOSIMILARS [Suspect]
     Active Substance: INVESTIGATIONAL BIOSIMILARS
     Dosage: 320 MILLIGRAM, QD
     Route: 041
     Dates: start: 20220208, end: 20220208
  9. INVESTIGATIONAL BIOSIMILARS [Suspect]
     Active Substance: INVESTIGATIONAL BIOSIMILARS
     Dosage: 320 MILLIGRAM, QD
     Route: 041
     Dates: start: 20220301, end: 20220301
  10. INVESTIGATIONAL BIOSIMILARS [Suspect]
     Active Substance: INVESTIGATIONAL BIOSIMILARS
     Dosage: 320 MILLIGRAM, QD
     Route: 041
     Dates: start: 20220322, end: 20220322
  11. INVESTIGATIONAL BIOSIMILARS [Suspect]
     Active Substance: INVESTIGATIONAL BIOSIMILARS
     Dosage: 320 MILLIGRAM, QD
     Route: 041
     Dates: start: 20220412, end: 20220412
  12. INVESTIGATIONAL BIOSIMILARS [Suspect]
     Active Substance: INVESTIGATIONAL BIOSIMILARS
     Dosage: 320 MILLIGRAM, QD
     Route: 041
     Dates: start: 20220510, end: 20220510
  13. INVESTIGATIONAL BIOSIMILARS [Suspect]
     Active Substance: INVESTIGATIONAL BIOSIMILARS
     Dosage: 320 MILLIGRAM, QD
     Route: 041
     Dates: start: 20220531, end: 20220531
  14. CISPLATIN [Suspect]
     Active Substance: CISPLATIN
     Indication: HER2 positive gastric cancer
     Dosage: 110 MILLIGRAM, QD
     Route: 041
     Dates: start: 20210908, end: 20210908
  15. CISPLATIN [Suspect]
     Active Substance: CISPLATIN
     Dosage: 110 MILLIGRAM, QD
     Route: 041
     Dates: start: 20210928, end: 20210928
  16. CAPECITABINE [Suspect]
     Active Substance: CAPECITABINE
     Indication: HER2 positive gastric cancer
     Dosage: 300 MILLIGRAM, QD
     Route: 048
     Dates: start: 20210908, end: 20210919
  17. CAPECITABINE [Suspect]
     Active Substance: CAPECITABINE
     Dosage: 300 MILLIGRAM, QD
     Route: 048
     Dates: start: 20210928, end: 20211011
  18. CAPECITABINE [Suspect]
     Active Substance: CAPECITABINE
     Dosage: 300 MILLIGRAM, QD
     Route: 048
     Dates: start: 20211109, end: 20211122
  19. CAPECITABINE [Suspect]
     Active Substance: CAPECITABINE
     Dosage: 300 MILLIGRAM, QD
     Route: 048
     Dates: start: 20211130, end: 20211213
  20. CAPECITABINE [Suspect]
     Active Substance: CAPECITABINE
     Dosage: 300 MILLIGRAM, QD
     Route: 048
     Dates: start: 20211221, end: 20220103
  21. CAPECITABINE [Suspect]
     Active Substance: CAPECITABINE
     Dosage: 300 MILLIGRAM, QD
     Route: 048
     Dates: start: 20220111, end: 20220124
  22. CAPECITABINE [Suspect]
     Active Substance: CAPECITABINE
     Dosage: 300 MILLIGRAM, QD
     Route: 048
     Dates: start: 20220208, end: 20220222
  23. CAPECITABINE [Suspect]
     Active Substance: CAPECITABINE
     Dosage: 300 MILLIGRAM, QD
     Route: 048
     Dates: start: 20220301, end: 20220315
  24. CAPECITABINE [Suspect]
     Active Substance: CAPECITABINE
     Dosage: 300 MILLIGRAM, QD
     Route: 048
     Dates: start: 20220322, end: 20220404
  25. CAPECITABINE [Suspect]
     Active Substance: CAPECITABINE
     Dosage: 300 MILLIGRAM, QD
     Route: 048
     Dates: start: 20220412, end: 20220425
  26. CAPECITABINE [Suspect]
     Active Substance: CAPECITABINE
     Dosage: 300 MILLIGRAM, QD
     Route: 048
  27. CAPECITABINE [Suspect]
     Active Substance: CAPECITABINE
     Dosage: 300 MILLIGRAM, QD
     Route: 048
     Dates: start: 20220531
  28. BETAMETHASONE VALERATE [Concomitant]
     Active Substance: BETAMETHASONE VALERATE
     Indication: Prophylaxis
     Dosage: UNK
     Dates: start: 20210908, end: 20210908
  29. DECADRON [Concomitant]
     Active Substance: DEXAMETHASONE
     Indication: Prophylaxis
     Dosage: UNK
     Dates: start: 20210908, end: 20211001
  30. DEXAMETHASONE [Concomitant]
     Active Substance: DEXAMETHASONE
     Indication: Prophylaxis
     Dosage: UNK
     Dates: start: 20210908, end: 20210908
  31. FAMOTIDINE [Concomitant]
     Active Substance: FAMOTIDINE
     Indication: HER2 positive gastric cancer
     Dosage: UNK
     Dates: start: 20220412, end: 20220509
  32. Hachiazule [Concomitant]
     Indication: Prophylaxis
     Dosage: UNK
     Dates: start: 20210908, end: 20210908
  33. HEPARINOID [Concomitant]
     Indication: Prophylaxis
     Dosage: UNK
     Dates: start: 20211221, end: 20220531
  34. MAGNESIUM OXIDE [Concomitant]
     Active Substance: MAGNESIUM OXIDE
     Indication: Constipation prophylaxis
     Dosage: UNK
     Dates: start: 20210908, end: 20210928
  35. OLANZAPINE [Concomitant]
     Active Substance: OLANZAPINE
     Indication: Prophylaxis
     Dosage: UNK
     Dates: start: 20210908, end: 20211001
  36. SODIUM ALGINATE [Concomitant]
     Active Substance: SODIUM ALGINATE
     Indication: Product used for unknown indication
     Dosage: UNK
     Dates: start: 20220510, end: 20220531

REACTIONS (6)
  - Carcinoembryonic antigen increased [Recovered/Resolved]
  - Neutropenia [Not Recovered/Not Resolved]
  - Neuropathy peripheral [Not Recovered/Not Resolved]
  - Generalised oedema [Recovered/Resolved]
  - Malaise [Recovered/Resolved]
  - Overdose [Unknown]

NARRATIVE: CASE EVENT DATE: 20210908
